FAERS Safety Report 5109799-2 (Version None)
Quarter: 2006Q3

REPORT INFORMATION
  Report Type: 
  Country: None (occurrence: None)
  Receive Date: 20060914
  Receipt Date: 20060905
  Transmission Date: 20061208
  Serious: Yes (Hospitalization)
  Sender: FDA-Public Use
  Company Number: FRWYE859105SEP06

PATIENT
  Age: 52 Year
  Sex: Male

DRUGS (1)
  1. EFFEXOR XR [Suspect]
     Dosage: 37.5 MG 1X PER 1 DAY, ORAL
     Route: 048
     Dates: start: 20030101

REACTIONS (3)
  - CEREBRAL HAEMATOMA [None]
  - EPILEPSY [None]
  - HAEMORRHAGIC STROKE [None]
